FAERS Safety Report 11216413 (Version 4)
Quarter: 2015Q4

REPORT INFORMATION
  Report Type: Spontaneous
  Country: CH (occurrence: CH)
  Receive Date: 20150624
  Receipt Date: 20151112
  Transmission Date: 20160304
  Serious: Yes (Life-Threatening, Hospitalization, Other)
  Sender: FDA-Public Use
  Company Number: CH-AMGEN-CHESP2015061492

PATIENT
  Age: 59 Year
  Sex: Male
  Weight: 70 kg

DRUGS (16)
  1. DEXAMETHASONE. [Concomitant]
     Active Substance: DEXAMETHASONE
     Dosage: 20 MG, 1 PER 1 DAY
     Route: 048
     Dates: start: 20150521, end: 20150522
  2. ZANTAC [Concomitant]
     Active Substance: RANITIDINE HYDROCHLORIDE
     Dosage: 150 MG, 1 PER 1 DAY
     Route: 048
     Dates: start: 20150521, end: 20150522
  3. LYRICA [Concomitant]
     Active Substance: PREGABALIN
     Indication: MUSCLE SPASMS
  4. CRESTOR [Concomitant]
     Active Substance: ROSUVASTATIN CALCIUM
     Indication: HYPERTRIGLYCERIDAEMIA
  5. CALCIMAGON D3 [Concomitant]
     Active Substance: CALCIUM\CHOLECALCIFEROL
     Dosage: UNK
     Route: 048
  6. CYCLOPHOSPHAMIDE. [Concomitant]
     Active Substance: CYCLOPHOSPHAMIDE
     Dosage: UNK
     Route: 048
     Dates: start: 20150610
  7. CRESTOR [Concomitant]
     Active Substance: ROSUVASTATIN CALCIUM
     Indication: CARDIOVASCULAR DISORDER
     Dosage: 100 MG, QD
     Route: 048
  8. LYRICA [Concomitant]
     Active Substance: PREGABALIN
     Indication: TREMOR
     Dosage: 75 MG IN EVENING AS REQUIRED
  9. BORTEZOMIB [Concomitant]
     Active Substance: BORTEZOMIB
     Dosage: UNK
     Route: 058
     Dates: start: 20150610
  10. FEXOFENADINE [Concomitant]
     Active Substance: FEXOFENADINE\FEXOFENADINE HYDROCHLORIDE
     Dosage: 180 MG, 1 PER 1 DAY
     Route: 048
     Dates: start: 20150521, end: 20150522
  11. ZOFRAN [Concomitant]
     Active Substance: ONDANSETRON HYDROCHLORIDE
     Dosage: 8 MG/100 ML, 1 PER 1 TOTAL
     Route: 041
     Dates: start: 20150521, end: 20150521
  12. METFORMINE [Concomitant]
     Active Substance: METFORMIN HYDROCHLORIDE
     Dosage: UNK
     Route: 048
  13. LYRICA [Concomitant]
     Active Substance: PREGABALIN
     Indication: DYSAESTHESIA
     Dosage: 25 MG IN MORNING AS REQUIRED
     Route: 048
  14. METFIN [Concomitant]
     Active Substance: METFORMIN HYDROCHLORIDE
     Indication: METABOLIC SYNDROME
     Dosage: 500 MG, QD
  15. ASPIRIN                            /00002701/ [Concomitant]
     Active Substance: ASPIRIN
     Indication: CARDIOVASCULAR DISORDER
     Dosage: 100 GM/UNIT, QD
     Route: 048
  16. KYPROLIS [Suspect]
     Active Substance: CARFILZOMIB
     Indication: PLASMA CELL MYELOMA
     Dosage: 20 MG/M2, 1 PER 1 DAY
     Route: 041
     Dates: start: 20150521

REACTIONS (20)
  - Lung infiltration [Recovered/Resolved]
  - Pancreatitis [Unknown]
  - Anuria [Recovered/Resolved]
  - Hepatic enzyme increased [Recovered/Resolved]
  - Pancreatic enzymes increased [Recovering/Resolving]
  - Acute kidney injury [Recovered/Resolved]
  - Plasma cell myeloma [Unknown]
  - Pneumonia [Not Recovered/Not Resolved]
  - Respiratory distress [Recovered/Resolved]
  - Generalised oedema [Unknown]
  - Thrombocytopenia [Unknown]
  - Haemoptysis [Recovered/Resolved]
  - Hepatitis [Unknown]
  - Hypertension [Recovered/Resolved]
  - Haemolytic uraemic syndrome [Not Recovered/Not Resolved]
  - Multi-organ failure [Unknown]
  - Anaemia [Unknown]
  - Pyrexia [Unknown]
  - Thrombotic microangiopathy [Recovered/Resolved]
  - Acute respiratory failure [Unknown]

NARRATIVE: CASE EVENT DATE: 201505
